FAERS Safety Report 22182226 (Version 1)
Quarter: 2023Q2

REPORT INFORMATION
  Report Type: Spontaneous
  Country: PT (occurrence: PT)
  Receive Date: 20230406
  Receipt Date: 20230406
  Transmission Date: 20230722
  Serious: Yes (Death, Hospitalization)
  Sender: FDA-Public Use
  Company Number: None

PATIENT
  Age: 89 Year
  Sex: Male

DRUGS (1)
  1. CAPECITABINE [Suspect]
     Active Substance: CAPECITABINE
     Indication: Rectal cancer
     Dosage: 2000 MG 12/12H FOR 14 DAYS, FOLLOWED BY A 7-DAY REST PERIOD
     Dates: start: 20220105, end: 20230301

REACTIONS (1)
  - Anaemia macrocytic [Fatal]

NARRATIVE: CASE EVENT DATE: 20230303
